FAERS Safety Report 7309860-8 (Version None)
Quarter: 2011Q1

REPORT INFORMATION
  Report Type: 
  Country: None (occurrence: None)
  Receive Date: 20110224
  Receipt Date: 20110217
  Transmission Date: 20110831
  Serious: No
  Sender: FDA-Public Use
  Company Number: US-BIOGENIDEC-2011BI006682

PATIENT
  Age: 39 Year
  Sex: Female

DRUGS (4)
  1. TYSABRI [Suspect]
     Route: 042
     Dates: start: 20091207, end: 20100119
  2. TYSABRI [Suspect]
     Route: 042
     Dates: start: 20070417, end: 20081121
  3. TYSABRI [Suspect]
     Indication: MULTIPLE SCLEROSIS
     Route: 042
     Dates: start: 20110214
  4. TYSABRI [Suspect]
     Route: 042
     Dates: start: 20101213

REACTIONS (1)
  - MIGRAINE [None]
